FAERS Safety Report 6934659-1 (Version None)
Quarter: 2010Q3

REPORT INFORMATION
  Report Type: 
  Country: None (occurrence: None)
  Receive Date: 20100820
  Receipt Date: 20100817
  Transmission Date: 20110219
  Serious: Yes (Other)
  Sender: FDA-Public Use
  Company Number: CN-ABBOTT-10P-035-0663720-00

PATIENT
  Age: 63 Year
  Sex: Male

DRUGS (3)
  1. VALPROATE SODIUM [Suspect]
     Indication: BIPOLAR DISORDER
  2. QUETIAPINE [Suspect]
     Indication: MANIA
  3. QUETIAPINE [Suspect]

REACTIONS (2)
  - DELIRIUM [None]
  - DRUG INTERACTION [None]
